FAERS Safety Report 7285654 (Version 2)
Quarter: 2020Q3

REPORT INFORMATION
  Report Type: Spontaneous
  Country: DE (occurrence: DE)
  Receive Date: 20100219
  Receipt Date: 20100622
  Transmission Date: 20201105
  Serious: Yes (Other)
  Sender: FDA-Public Use
  Company Number: DE-ROCHE-685519

PATIENT
  Sex: Female

DRUGS (4)
  1. IBANDRONIC ACID. [Suspect]
     Active Substance: IBANDRONIC ACID
     Dosage: TABLETS
     Route: 048
     Dates: start: 200905, end: 200908
  2. ZOLADEX [Concomitant]
     Active Substance: GOSERELIN ACETATE
  3. IBANDRONIC ACID. [Suspect]
     Active Substance: IBANDRONIC ACID
     Indication: BREAST CANCER
     Dosage: AS INFUSION
     Route: 042
     Dates: start: 200908
  4. FEMARA [Concomitant]
     Active Substance: LETROZOLE

REACTIONS (2)
  - Macular oedema [Not Recovered/Not Resolved]
  - Iridocyclitis [Not Recovered/Not Resolved]

NARRATIVE: CASE EVENT DATE: 20090801
